FAERS Safety Report 22118183 (Version 5)
Quarter: 2023Q2

REPORT INFORMATION
  Report Type: Other
  Country: US (occurrence: None)
  Receive Date: 20230321
  Receipt Date: 20230417
  Transmission Date: 20230722
  Serious: Yes (Life-Threatening, Hospitalization, Other)
  Sender: FDA-Public Use
  Company Number: US-ROCHE-3313362

PATIENT
  Age: 13 Month
  Sex: Male
  Weight: 7.1 kg

DRUGS (3)
  1. EVRYSDI [Suspect]
     Active Substance: RISDIPLAM
     Indication: Spinal muscular atrophy
     Dosage: FORMULATION 0.75 MG/ML, LAST DOSE: DEC/2022
     Route: 048
     Dates: start: 20221027, end: 20221207
  2. EVRYSDI [Suspect]
     Active Substance: RISDIPLAM
     Indication: Spinal muscular atrophy
     Dosage: STRENGTH: 0.75 MG/ML
     Route: 048
     Dates: start: 20230405
  3. ZOLGENSMA [Concomitant]
     Active Substance: ONASEMNOGENE ABEPARVOVEC-XIOI

REACTIONS (4)
  - Cardiac arrest [Recovering/Resolving]
  - Cyanosis [Unknown]
  - Tracheostomy malfunction [Recovering/Resolving]
  - Heart rate increased [Not Recovered/Not Resolved]

NARRATIVE: CASE EVENT DATE: 20230406
